FAERS Safety Report 6593206-7 (Version None)
Quarter: 2010Q1

REPORT INFORMATION
  Report Type: 
  Country: None (occurrence: None)
  Receive Date: 20100222
  Receipt Date: 20100218
  Transmission Date: 20100710
  Serious: Yes (Death)
  Sender: FDA-Public Use
  Company Number: PHEH2010US02599

PATIENT
  Age: 88 Year
  Sex: Male

DRUGS (1)
  1. RECLAST [Suspect]
     Dosage: UNK

REACTIONS (2)
  - ASPIRATION [None]
  - DYSPHAGIA [None]
